FAERS Safety Report 13271471 (Version 1)
Quarter: 2017Q1

REPORT INFORMATION
  Report Type: Spontaneous
  Country: US (occurrence: US)
  Receive Date: 20170227
  Receipt Date: 20170227
  Transmission Date: 20170428
  Serious: Yes (Other)
  Sender: FDA-Public Use
  Company Number: US-HETERO LABS LTD-1063603

PATIENT
  Age: 74 Year
  Sex: Female
  Weight: 104 kg

DRUGS (11)
  1. MIRALAX [Suspect]
     Active Substance: POLYETHYLENE GLYCOL 3350
     Route: 065
  2. HYDRALAZINE [Suspect]
     Active Substance: HYDRALAZINE HYDROCHLORIDE
     Indication: HYPERTENSION
     Route: 048
  3. VITAMIN C [Suspect]
     Active Substance: ASCORBIC ACID
     Route: 065
  4. NYSTATIN. [Suspect]
     Active Substance: NYSTATIN
     Route: 065
  5. NYSTATIN. [Suspect]
     Active Substance: NYSTATIN
     Route: 065
  6. SYNTHROID [Suspect]
     Active Substance: LEVOTHYROXINE SODIUM
     Route: 065
  7. OMEPRAZOLE. [Suspect]
     Active Substance: OMEPRAZOLE
     Route: 065
  8. ZINC. [Suspect]
     Active Substance: ZINC
     Route: 065
  9. INLYTA [Suspect]
     Active Substance: AXITINIB
     Route: 048
  10. VITAMIN D [Suspect]
     Active Substance: CHOLECALCIFEROL
     Route: 065
  11. IMODIUM [Suspect]
     Active Substance: LOPERAMIDE HYDROCHLORIDE
     Route: 065

REACTIONS (4)
  - Haemoptysis [Unknown]
  - Laryngitis [Not Recovered/Not Resolved]
  - Polyuria [Not Recovered/Not Resolved]
  - Hypertension [Recovering/Resolving]

NARRATIVE: CASE EVENT DATE: 20170104
